FAERS Safety Report 22263475 (Version 1)
Quarter: 2023Q2

REPORT INFORMATION
  Report Type: Spontaneous
  Country: GB (occurrence: GB)
  Receive Date: 20230428
  Receipt Date: 20230428
  Transmission Date: 20230722
  Serious: Yes (Hospitalization, Other)
  Sender: FDA-Public Use
  Company Number: GB-MYLANLABS-2023M1020004

PATIENT
  Sex: Female
  Weight: 81 kg

DRUGS (7)
  1. ATORVASTATIN [Suspect]
     Active Substance: ATORVASTATIN
     Indication: Blood cholesterol increased
     Dosage: 20 MILLIGRAM, QD (DAILY)
     Route: 048
     Dates: end: 20230227
  2. AMLODIPINE [Suspect]
     Active Substance: AMLODIPINE BESYLATE
     Indication: Hypertension
     Dosage: 5 MILLIGRAM, QD (DAILY)
     Route: 048
     Dates: end: 20230221
  3. CHOLECALCIFEROL [Suspect]
     Active Substance: CHOLECALCIFEROL
     Indication: Vitamin D decreased
     Dosage: 800 INTERNATIONAL UNIT, QD (DAILY)
     Route: 048
  4. CLOZARIL [Suspect]
     Active Substance: CLOZAPINE
     Indication: Schizophrenia
     Dosage: 125 MILLIGRAM, QD (DAILY)
     Route: 048
     Dates: start: 20230123, end: 20230207
  5. LEVOTHYROXINE [Suspect]
     Active Substance: LEVOTHYROXINE
     Indication: Hypothyroidism
     Dosage: 75 MICROGRAM, QD (DAILY)
     Route: 048
  6. SERTRALINE [Suspect]
     Active Substance: SERTRALINE HYDROCHLORIDE
     Indication: Depression
     Dosage: 50 MILLIGRAM, QD (DAILY)
     Route: 048
  7. SERTRALINE [Suspect]
     Active Substance: SERTRALINE HYDROCHLORIDE
     Indication: Anxiety

REACTIONS (19)
  - Mitral valve incompetence [Recovered/Resolved]
  - Splenomegaly [Not Recovered/Not Resolved]
  - Diastolic dysfunction [Recovering/Resolving]
  - C-reactive protein increased [Recovered/Resolved]
  - Troponin increased [Recovered/Resolved]
  - Drug intolerance [Unknown]
  - Pleural effusion [Recovered/Resolved]
  - Hallucination, auditory [Not Recovered/Not Resolved]
  - Pneumonia [Unknown]
  - Hypotension [Recovering/Resolving]
  - Lower respiratory tract infection [Recovered/Resolved]
  - Blood alkaline phosphatase increased [Recovered/Resolved]
  - Chest pain [Recovered/Resolved]
  - Oedema peripheral [Recovered/Resolved]
  - Peripheral swelling [Recovered/Resolved]
  - Liver function test increased [Recovered/Resolved]
  - Tinnitus [Not Recovered/Not Resolved]
  - Malaise [Unknown]
  - Vomiting [Unknown]
